FAERS Safety Report 4570084-9 (Version None)
Quarter: 2005Q1

REPORT INFORMATION
  Report Type: 
  Country: None (occurrence: None)
  Receive Date: 20050131
  Receipt Date: 20050118
  Transmission Date: 20050727
  Serious: Yes (Other)
  Sender: FDA-Public Use
  Company Number: 2005015036

PATIENT
  Age: 71 Year
  Sex: Female
  Weight: 79.3795 kg

DRUGS (4)
  1. ROGAINE [Suspect]
     Indication: HYPOTRICHOSIS
     Dosage: 1 ML, BID, TOPICAL
     Route: 061
     Dates: end: 20040901
  2. CLOPIDOGREL BISULFATE [Suspect]
  3. VITAMINS NOS (VITAMINS NOS) [Concomitant]
  4. ANTIOXIDANTS (ANTIOXIDANTS) [Concomitant]

REACTIONS (2)
  - COLON CANCER [None]
  - OPERATIVE HAEMORRHAGE [None]
